FAERS Safety Report 16629064 (Version 2)
Quarter: 2019Q4

REPORT INFORMATION
  Report Type: Spontaneous
  Country: JP (occurrence: JP)
  Receive Date: 20190725
  Receipt Date: 20191016
  Transmission Date: 20200122
  Serious: Yes (Hospitalization, Other)
  Sender: FDA-Public Use
  Company Number: JP-BRISTOL-MYERS SQUIBB COMPANY-BMS-2019-057180

PATIENT
  Age: 69 Year
  Sex: Female
  Weight: 57 kg

DRUGS (1)
  1. OPDIVO [Suspect]
     Active Substance: NIVOLUMAB
     Indication: NON-SMALL CELL LUNG CANCER
     Dosage: 240 MILLIGRAM
     Route: 041
     Dates: start: 20180329

REACTIONS (10)
  - Musculoskeletal pain [Unknown]
  - Musculoskeletal stiffness [Unknown]
  - Polyuria [Unknown]
  - Pain in extremity [Unknown]
  - Pallor [Unknown]
  - Dysphagia [Unknown]
  - Thirst [Unknown]
  - Hypothalamo-pituitary disorder [Recovered/Resolved]
  - Cachexia [Unknown]
  - Oedema peripheral [Unknown]

NARRATIVE: CASE EVENT DATE: 20190307
